FAERS Safety Report 21060842 (Version 4)
Quarter: 2022Q4

REPORT INFORMATION
  Report Type: Spontaneous
  Country: US (occurrence: US)
  Receive Date: 20220709
  Receipt Date: 20221004
  Transmission Date: 20230112
  Serious: Yes (Death, Hospitalization, Other)
  Sender: FDA-Public Use
  Company Number: US-JNJFOC-20220705303

PATIENT
  Age: 69 Year
  Sex: Female

DRUGS (10)
  1. UPTRAVI [Suspect]
     Active Substance: SELEXIPAG
     Indication: Product used for unknown indication
     Route: 048
     Dates: start: 20210710
  2. AMBRISENTAN [Suspect]
     Active Substance: AMBRISENTAN
     Indication: Pulmonary hypertension
     Route: 065
     Dates: start: 201602
  3. REMODULIN [Suspect]
     Active Substance: TREPROSTINIL
     Indication: Pulmonary hypertension
     Route: 065
     Dates: start: 20220308
  4. REMODULIN [Suspect]
     Active Substance: TREPROSTINIL
     Route: 065
     Dates: start: 20220315
  5. REMODULIN [Suspect]
     Active Substance: TREPROSTINIL
     Route: 065
     Dates: start: 20220308
  6. REMODULIN [Suspect]
     Active Substance: TREPROSTINIL
     Route: 065
     Dates: start: 20220214
  7. SILDENAFIL [Suspect]
     Active Substance: SILDENAFIL
     Indication: Pulmonary hypertension
     Dates: start: 201911
  8. SILDENAFIL [Suspect]
     Active Substance: SILDENAFIL
     Dates: start: 20151114
  9. SILDENAFIL [Suspect]
     Active Substance: SILDENAFIL
     Dates: start: 20150425
  10. LASIX [Concomitant]
     Active Substance: FUROSEMIDE

REACTIONS (12)
  - Death [Fatal]
  - Pulmonary oedema [Not Recovered/Not Resolved]
  - Cardiac disorder [Unknown]
  - Lung disorder [Unknown]
  - Injection site pain [Unknown]
  - Injection site swelling [Unknown]
  - Intra-abdominal fluid collection [Not Recovered/Not Resolved]
  - Hypotension [Unknown]
  - Oxygen consumption increased [Not Recovered/Not Resolved]
  - Infusion site erythema [Not Recovered/Not Resolved]
  - Asthenia [Recovered/Resolved]
  - Dizziness [Recovered/Resolved]

NARRATIVE: CASE EVENT DATE: 20220601
